FAERS Safety Report 5792124-1 (Version None)
Quarter: 2008Q2

REPORT INFORMATION
  Report Type: 
  Country: None (occurrence: None)
  Receive Date: 20080626
  Receipt Date: 20080220
  Transmission Date: 20081010
  Serious: No
  Sender: FDA-Public Use
  Company Number: US-ASTRAZENECA-2008UW03550

PATIENT
  Age: 72 Year

DRUGS (5)
  1. PULMICORT FLEXHALER [Suspect]
     Indication: CHRONIC OBSTRUCTIVE PULMONARY DISEASE
     Route: 055
  2. PULMICORT FLEXHALER [Suspect]
     Indication: ASTHMA
     Route: 055
  3. PULMICORT FLEXHALER [Suspect]
     Indication: EMPHYSEMA
     Route: 055
  4. SPIRIVA [Concomitant]
  5. SEREVENT [Concomitant]

REACTIONS (1)
  - PRODUCTIVE COUGH [None]
